FAERS Safety Report 6898703-2 (Version None)
Quarter: 2010Q3

REPORT INFORMATION
  Report Type: 
  Country: None (occurrence: None)
  Receive Date: 20100802
  Receipt Date: 20071112
  Transmission Date: 20110219
  Serious: Yes (Other)
  Sender: FDA-Public Use
  Company Number: US-PFIZER INC-2007095656

PATIENT
  Sex: Female
  Weight: 90.7 kg

DRUGS (10)
  1. LYRICA [Suspect]
     Indication: ANXIETY
     Dates: start: 20071003
  2. LYRICA [Suspect]
     Indication: CRYING
  3. KLONOPIN [Suspect]
     Dates: start: 20070101
  4. REQUIP [Concomitant]
  5. LEXAPRO [Concomitant]
  6. WELLBUTRIN [Concomitant]
  7. SEROQUEL [Concomitant]
  8. ACETYLSALICYLIC ACID SRT [Concomitant]
  9. LORTAB [Concomitant]
  10. CALCIUM [Concomitant]

REACTIONS (3)
  - AMNESIA [None]
  - BALANCE DISORDER [None]
  - GAIT DISTURBANCE [None]
